FAERS Safety Report 4941681-3 (Version None)
Quarter: 2006Q1

REPORT INFORMATION
  Report Type: 
  Country: None (occurrence: None)
  Receive Date: 20060313
  Receipt Date: 20060215
  Transmission Date: 20060701
  Serious: Yes (Other)
  Sender: FDA-Public Use
  Company Number: JP-ROCHE-437314

PATIENT
  Age: 70 Year
  Sex: Female
  Weight: 63 kg

DRUGS (13)
  1. TAMIFLU [Suspect]
     Indication: INFLUENZA
     Route: 048
     Dates: start: 20060210, end: 20060210
  2. TAMIFLU [Suspect]
     Route: 048
     Dates: start: 20060211, end: 20060214
  3. TAMIFLU [Suspect]
     Route: 048
     Dates: start: 20060215
  4. EUGLUCON [Suspect]
     Indication: DIABETES MELLITUS
     Route: 048
     Dates: start: 20050325
  5. DIOVAN [Suspect]
     Indication: HYPERTENSION
     Route: 048
     Dates: start: 20050218
  6. BASEN [Suspect]
     Indication: DIABETES MELLITUS
     Route: 048
     Dates: start: 20050318
  7. ACTOS [Suspect]
     Indication: DIABETES MELLITUS
     Route: 048
     Dates: start: 20050408
  8. CONAN [Suspect]
     Indication: HYPERTENSION
     Route: 048
     Dates: start: 20051028
  9. PROMETHAZINE HCL [Concomitant]
     Dosage: BETWEEN SEPT 2004 AND 28 OCT 2005 25 MG ONCE A DAY, FROM FEB 2006 25 MG THREE TIMES A DAY.
     Route: 048
     Dates: start: 20040915
  10. RISPERDAL [Concomitant]
     Route: 048
     Dates: start: 20051028
  11. GLUCOSE [Concomitant]
     Dosage: ROUTE- INJECTABLE (NOS). 24 JAN-24 JAN 2006 DOSING WAS 10G DAILY. FROM 26-26 JAN 2006 DOSING WAS 1 +
     Route: 050
     Dates: start: 20060124, end: 20060212
  12. TASMOLIN [Concomitant]
     Route: 048
     Dates: start: 20051228
  13. DEPAS [Concomitant]
     Route: 048
     Dates: start: 20051216

REACTIONS (7)
  - BLOOD PRESSURE INCREASED [None]
  - COMMUNICATION DISORDER [None]
  - FALL [None]
  - HEAD INJURY [None]
  - HYPOGLYCAEMIA [None]
  - PALLOR [None]
  - SUBCUTANEOUS HAEMATOMA [None]
